FAERS Safety Report 10407025 (Version 4)
Quarter: 2014Q4

REPORT INFORMATION
  Report Type: Report from Study
  Country: DE (occurrence: DE)
  Receive Date: 20140825
  Receipt Date: 20141204
  Transmission Date: 20150528
  Serious: Yes (Hospitalization)
  Sender: FDA-Public Use
  Company Number: DE-SA-2014SA059895

PATIENT
  Age: 40 Year
  Sex: Female

DRUGS (2)
  1. AUBAGIO [Suspect]
     Active Substance: TERIFLUNOMIDE
     Indication: MULTIPLE SCLEROSIS
     Route: 048
     Dates: start: 20140602, end: 20141122
  2. AUBAGIO [Suspect]
     Active Substance: TERIFLUNOMIDE
     Indication: MULTIPLE SCLEROSIS
     Route: 048
     Dates: start: 20140127, end: 20140515

REACTIONS (11)
  - Dyspepsia [Unknown]
  - Alopecia [Recovering/Resolving]
  - Nuclear magnetic resonance imaging abnormal [Unknown]
  - Hemiparesis [Not Recovered/Not Resolved]
  - Nausea [Unknown]
  - Gamma-glutamyltransferase abnormal [Unknown]
  - Condition aggravated [Unknown]
  - Unevaluable event [Not Recovered/Not Resolved]
  - Acne [Recovered/Resolved]
  - Pruritus [Recovered/Resolved]
  - Rash [Recovered/Resolved]

NARRATIVE: CASE EVENT DATE: 201404
